FAERS Safety Report 5929208-0 (Version None)
Quarter: 2008Q4

REPORT INFORMATION
  Report Type: 
  Country: None (occurrence: None)
  Receive Date: 20081024
  Receipt Date: 20081017
  Transmission Date: 20090506
  Serious: Yes (Hospitalization, Other)
  Sender: FDA-Public Use
  Company Number: US-BAYER-US-2005-011752

PATIENT
  Age: 40 Year
  Sex: Female
  Weight: 71 kg

DRUGS (6)
  1. CAMPATH [Suspect]
     Indication: PANCREAS TRANSPLANT
     Route: 042
     Dates: start: 20040207, end: 20040214
  2. THYMOGLOBULIN [Suspect]
     Indication: PANCREAS TRANSPLANT REJECTION
     Dosage: UNIT DOSE: 100 MG
     Route: 042
     Dates: start: 20040217, end: 20040217
  3. CORTICOSTEROIDS [Concomitant]
     Indication: IMMUNOSUPPRESSION
     Dosage: UNIT DOSE: 20 MG
     Dates: start: 20050401
  4. TACROLIMUS [Concomitant]
  5. RAPAMUNE [Concomitant]
  6. PREDNISONE TAB [Concomitant]
     Dates: start: 20050401

REACTIONS (5)
  - ANAEMIA HAEMOLYTIC AUTOIMMUNE [None]
  - CYTOMEGALOVIRUS INFECTION [None]
  - PANCREAS TRANSPLANT REJECTION [None]
  - RASH [None]
  - SOFT TISSUE INFECTION [None]
